FAERS Safety Report 9014557 (Version 1)
Quarter: 2013Q1

REPORT INFORMATION
  Report Type: Spontaneous
  Country: GB (occurrence: GB)
  Receive Date: 20130115
  Receipt Date: 20130115
  Transmission Date: 20140127
  Serious: Yes (Other)
  Sender: FDA-Public Use
  Company Number: GB-PFIZER INC-2013010523

PATIENT
  Age: 20 Year
  Sex: Male

DRUGS (1)
  1. REFACTO AF [Suspect]
     Dosage: 1500 IU, ALTERNATE DAY

REACTIONS (1)
  - Factor VIII inhibition [Recovered/Resolved]
